FAERS Safety Report 8917304 (Version 1)
Quarter: 2012Q4

REPORT INFORMATION
  Report Type: 
  Country: RS (occurrence: RS)
  Receive Date: 20121120
  Receipt Date: 20121120
  Transmission Date: 20130627
  Serious: Yes (Death, Other)
  Sender: FDA-Public Use
  Company Number: RS-BAYER-2012-120334

PATIENT
  Age: 62 Year
  Sex: Male

DRUGS (7)
  1. CIPROFLOXACIN MONOHYDROCHLORIDE [Suspect]
     Indication: NOSOCOMIAL PNEUMONIA
  2. AMOXICILLIN W/CLAVULANIC ACID TEVA [Suspect]
     Indication: ANTIBIOTIC THERAPY
     Route: 051
  3. CEFTAZIDIME [Suspect]
     Indication: NOSOCOMIAL PNEUMONIA
  4. DOXYCYCLINE [Suspect]
     Indication: NOSOCOMIAL PNEUMONIA
  5. PACLITAXEL [Concomitant]
     Indication: ADENOCARCINOMA
  6. CARBOPLATIN [Concomitant]
     Indication: ADENOCARCINOMA
  7. BISPHOSPHONATES [Concomitant]

REACTIONS (3)
  - General physical health deterioration [Fatal]
  - Poisoning [Fatal]
  - Therapeutic response decreased [None]
